FAERS Safety Report 4791874-3 (Version None)
Quarter: 2005Q4

REPORT INFORMATION
  Report Type: 
  Country: None (occurrence: None)
  Receive Date: 20051005
  Receipt Date: 20050905
  Transmission Date: 20060501
  Serious: Yes (Hospitalization)
  Sender: FDA-Public Use
  Company Number: 2005RR-00761

PATIENT
  Age: 78 Year
  Sex: Female

DRUGS (5)
  1. ASPIRIN [Suspect]
     Indication: DEMENTIA
     Dosage: 75 MG, QD, ORAL
     Route: 048
     Dates: end: 20050802
  2. IBUPROFEN TABLETS [Suspect]
     Indication: OSTEOARTHRITIS
     Dosage: 200 MG, PRN,ORAL
     Route: 048
     Dates: end: 20050802
  3. LACTULOSE [Concomitant]
  4. SENNA [Concomitant]
  5. FYBOGEL [Concomitant]

REACTIONS (1)
  - GASTROINTESTINAL HAEMORRHAGE [None]
